FAERS Safety Report 10183435 (Version 1)
Quarter: 2014Q2

REPORT INFORMATION
  Report Type: Spontaneous
  Country: US (occurrence: US)
  Receive Date: 20140520
  Receipt Date: 20140520
  Transmission Date: 20141212
  Serious: No
  Sender: FDA-Public Use
  Company Number: US-GILEAD-2014-0102880

PATIENT
  Age: 64 Year
  Sex: Male

DRUGS (1)
  1. LETAIRIS [Suspect]
     Indication: PULMONARY HYPERTENSION
     Route: 065
     Dates: start: 20120402

REACTIONS (2)
  - Chest pain [Unknown]
  - Fluid retention [Unknown]
